FAERS Safety Report 22252845 (Version 1)
Quarter: 2023Q2

REPORT INFORMATION
  Report Type: Spontaneous
  Country: US (occurrence: US)
  Receive Date: 20230426
  Receipt Date: 20230426
  Transmission Date: 20230722
  Serious: No
  Sender: FDA-Public Use
  Company Number: US-GLAXOSMITHKLINE-US2023AMR059884

PATIENT
  Age: 49 Year
  Sex: Female

DRUGS (1)
  1. ZEJULA [Suspect]
     Active Substance: NIRAPARIB
     Indication: Ovarian cancer
     Dosage: 200 MG, QD (ON DAYS 1 THROUGH 28)
     Route: 048

REACTIONS (3)
  - Photosensitivity reaction [Unknown]
  - Erythema [Unknown]
  - Constipation [Unknown]

NARRATIVE: CASE EVENT DATE: 20230421
